FAERS Safety Report 4991493-X (Version None)
Quarter: 2006Q2

REPORT INFORMATION
  Report Type: 
  Country: None (occurrence: None)
  Receive Date: 20060502
  Receipt Date: 20060421
  Transmission Date: 20061013
  Serious: Yes (Other)
  Sender: FDA-Public Use
  Company Number: 2006-04-1563

PATIENT
  Age: 55 Year
  Sex: Female

DRUGS (1)
  1. AERIUS (DESLORATADINE)TABLETS [Suspect]
     Dosage: 5 MG ORAL
     Route: 048

REACTIONS (1)
  - ANGIONEUROTIC OEDEMA [None]
